FAERS Safety Report 6449806-8 (Version None)
Quarter: 2009Q4

REPORT INFORMATION
  Report Type: 
  Country: None (occurrence: None)
  Receive Date: 20091120
  Receipt Date: 20090309
  Transmission Date: 20100525
  Serious: Yes (Other)
  Sender: FDA-Public Use
  Company Number: US-AMGEN-QUU337612

PATIENT
  Sex: Male

DRUGS (2)
  1. ENBREL [Suspect]
     Indication: RHEUMATOID ARTHRITIS
     Route: 058
     Dates: start: 20090115
  2. UNSPECIFIED ANTI-INFECTIVE AGENT [Concomitant]
     Dates: end: 20090309

REACTIONS (5)
  - CHEST PAIN [None]
  - DYSPNOEA [None]
  - FUNGAL INFECTION [None]
  - INJECTION SITE RASH [None]
  - SKIN FISSURES [None]
